FAERS Safety Report 21938366 (Version 1)
Quarter: 2023Q1

REPORT INFORMATION
  Report Type: Spontaneous
  Country: FR (occurrence: FR)
  Receive Date: 20230201
  Receipt Date: 20230201
  Transmission Date: 20230417
  Serious: Yes (Hospitalization)
  Sender: FDA-Public Use
  Company Number: None

PATIENT
  Age: 72 Year
  Sex: Female
  Weight: 55.8 kg

DRUGS (2)
  1. LENVIMA [Suspect]
     Active Substance: LENVATINIB
     Indication: Malignant peritoneal neoplasm
     Dosage: DOSE UNKNOWN
     Route: 048
     Dates: start: 202211
  2. KEYTRUDA [Concomitant]
     Active Substance: PEMBROLIZUMAB
     Indication: Malignant peritoneal neoplasm

REACTIONS (5)
  - Vomiting [Recovering/Resolving]
  - Headache [Not Recovered/Not Resolved]
  - Decreased appetite [Unknown]
  - Arthralgia [Not Recovered/Not Resolved]
  - Hypothyroidism [Unknown]

NARRATIVE: CASE EVENT DATE: 20221101
